FAERS Safety Report 9990410 (Version 1)
Quarter: 2014Q1

REPORT INFORMATION
  Report Type: Report from Study
  Country: US (occurrence: US)
  Receive Date: 20140310
  Receipt Date: 20140310
  Transmission Date: 20141002
  Serious: No
  Sender: FDA-Public Use
  Company Number: US-ABBVIE-13P-163-1132348-00

PATIENT
  Age: 31 Year
  Sex: Male

DRUGS (5)
  1. HUMIRA [Suspect]
     Indication: PSORIASIS
     Dates: start: 201201, end: 201206
  2. HUMIRA [Suspect]
  3. HUMIRA [Suspect]
     Dates: end: 201301
  4. HUMIRA [Suspect]
     Dosage: 2 INJECTIONS
     Dates: start: 20130809
  5. ADDERALL [Concomitant]
     Indication: ATTENTION DEFICIT/HYPERACTIVITY DISORDER
     Dosage: 30 MG DAILY

REACTIONS (2)
  - Urinary tract infection [Recovered/Resolved]
  - Psoriasis [Unknown]
